FAERS Safety Report 6712517-5 (Version None)
Quarter: 2010Q2

REPORT INFORMATION
  Report Type: 
  Country: None (occurrence: None)
  Receive Date: 20100505
  Receipt Date: 20100505
  Transmission Date: 20101027
  Serious: Yes (Other)
  Sender: FDA-Public Use
  Company Number: None

PATIENT
  Sex: Female
  Weight: 63.05 kg

DRUGS (3)
  1. SYNTHROID [Suspect]
     Indication: NODULE
     Dosage: 75 MCG 1CE A DAY ORALLY
     Route: 048
     Dates: start: 20100403
  2. DILANTIN [Concomitant]
  3. MYSOLINE [Concomitant]

REACTIONS (2)
  - HYPERSENSITIVITY [None]
  - PRURITUS GENERALISED [None]
